FAERS Safety Report 6922371-4 (Version None)
Quarter: 2010Q3

REPORT INFORMATION
  Report Type: 
  Country: None (occurrence: None)
  Receive Date: 20100813
  Receipt Date: 20100804
  Transmission Date: 20110219
  Serious: Yes (Hospitalization)
  Sender: FDA-Public Use
  Company Number: US-JNJFOC-20100801266

PATIENT
  Age: 62 Year
  Sex: Male
  Weight: 118.84 kg

DRUGS (1)
  1. REMICADE [Suspect]
     Indication: PSORIATIC ARTHROPATHY
     Route: 042

REACTIONS (1)
  - MYOCARDIAL INFARCTION [None]
